FAERS Safety Report 7409233-3 (Version None)
Quarter: 2011Q2

REPORT INFORMATION
  Report Type: 
  Country: None (occurrence: None)
  Receive Date: 20110412
  Receipt Date: 20110407
  Transmission Date: 20111010
  Serious: Yes (Hospitalization)
  Sender: FDA-Public Use
  Company Number: A0886358A

PATIENT
  Age: 46 Year
  Sex: Male
  Weight: 136.4 kg

DRUGS (9)
  1. VIOXX [Concomitant]
  2. TOPROL-XL [Concomitant]
  3. MAXZIDE [Concomitant]
  4. FLONASE [Concomitant]
  5. AMARYL [Concomitant]
  6. AVANDIA [Suspect]
     Dosage: 8MG TWICE PER DAY
     Route: 048
     Dates: start: 20020218, end: 20080325
  7. METFORMIN [Concomitant]
  8. LISINOPRIL [Concomitant]
  9. MOBIC [Concomitant]

REACTIONS (1)
  - MYOCARDIAL INFARCTION [None]
